FAERS Safety Report 9401055 (Version 1)
Quarter: 2013Q3

REPORT INFORMATION
  Report Type: Spontaneous
  Country: GB (occurrence: GB)
  Receive Date: 20130715
  Receipt Date: 20130715
  Transmission Date: 20140515
  Serious: Yes (Hospitalization)
  Sender: FDA-Public Use
  Company Number: GB-BRISTOL-MYERS SQUIBB COMPANY-19084060

PATIENT
  Age: 56 Year
  Sex: Female
  Weight: 125.7 kg

DRUGS (7)
  1. ABILIFY [Suspect]
     Indication: SCHIZOAFFECTIVE DISORDER
     Route: 048
     Dates: start: 20100603
  2. FRUSEMIDE [Concomitant]
  3. LANSOPRAZOLE [Concomitant]
  4. NICOTINAMIDE [Concomitant]
  5. PYRIDOXINE HCL [Concomitant]
  6. RIBOFLAVIN [Concomitant]
  7. THIAMINE HCL [Concomitant]

REACTIONS (4)
  - Alanine aminotransferase increased [Recovering/Resolving]
  - Malaise [Unknown]
  - Pneumonia [Unknown]
  - Productive cough [Unknown]
